FAERS Safety Report 4662931-7 (Version None)
Quarter: 2005Q2

REPORT INFORMATION
  Report Type: 
  Country: None (occurrence: None)
  Receive Date: 20050512
  Receipt Date: 20050506
  Transmission Date: 20051028
  Serious: Yes (Other)
  Sender: FDA-Public Use
  Company Number: GBWYE524622MAR05

PATIENT
  Age: 34 Year
  Sex: Male

DRUGS (2)
  1. EFFEXOR XR [Suspect]
     Indication: DEPRESSION
     Dosage: ONE  A DAY, ORAL
     Route: 048
     Dates: start: 20040101
  2. VALPROATE SODIUM [Suspect]
     Indication: EPILEPSY
     Dosage: FOR SOME TIME

REACTIONS (2)
  - DRUG INTERACTION [None]
  - EPILEPSY [None]
